FAERS Safety Report 14444375 (Version 2)
Quarter: 2018Q1

REPORT INFORMATION
  Report Type: Report from Study
  Country: FR (occurrence: FR)
  Receive Date: 20180125
  Receipt Date: 20180210
  Transmission Date: 20180509
  Serious: Yes (Death, Life-Threatening, Hospitalization, Other)
  Sender: FDA-Public Use
  Company Number: PHHY2017FR177972

PATIENT
  Age: 67 Year
  Sex: Male
  Weight: 57.9 kg

DRUGS (2)
  1. SOMATULINE [Concomitant]
     Active Substance: LANREOTIDE ACETATE
     Indication: METASTASES TO LIVER
     Dosage: 120 MG, Q3W
     Route: 030
     Dates: start: 201612
  2. AFINITOR [Suspect]
     Active Substance: EVEROLIMUS
     Dosage: 10 MG, QD (1 DF QD)
     Route: 065
     Dates: start: 20170818, end: 20170925

REACTIONS (6)
  - Acute kidney injury [Recovering/Resolving]
  - Staphylococcal sepsis [Fatal]
  - Cachexia [Unknown]
  - General physical health deterioration [Not Recovered/Not Resolved]
  - Asthenia [Unknown]
  - Dehydration [Unknown]

NARRATIVE: CASE EVENT DATE: 20170908
